FAERS Safety Report 5944711-5 (Version None)
Quarter: 2008Q4

REPORT INFORMATION
  Report Type: 
  Country: None (occurrence: None)
  Receive Date: 20081107
  Receipt Date: 20081031
  Transmission Date: 20090506
  Serious: Yes (Other)
  Sender: FDA-Public Use
  Company Number: US-BAYER-200813432BCC

PATIENT
  Age: 87 Year
  Sex: Male
  Weight: 72 kg

DRUGS (6)
  1. ALEVE [Suspect]
     Indication: ARTHRALGIA
     Dosage: TOTAL DAILY DOSE: 220 MG  UNIT DOSE: 220 MG
     Route: 048
     Dates: start: 20080812, end: 20080814
  2. PLAVIX [Concomitant]
     Dosage: TOTAL DAILY DOSE: 75 MG  UNIT DOSE: 75 MG
     Dates: start: 20030101
  3. TOPROL-XL [Concomitant]
     Dosage: TOTAL DAILY DOSE: 25 MG  UNIT DOSE: 25 MG
     Dates: start: 20030101
  4. DIOVAN [Concomitant]
     Dosage: TOTAL DAILY DOSE: 80 MG  UNIT DOSE: 80 MG
     Dates: start: 20030101
  5. LIPITOR [Concomitant]
     Dosage: TOTAL DAILY DOSE: 20 MG  UNIT DOSE: 20 MG
     Dates: start: 20030101
  6. ZETIA [Concomitant]
     Dosage: TOTAL DAILY DOSE: 10 MG  UNIT DOSE: 10 MG
     Dates: start: 20030101

REACTIONS (3)
  - COORDINATION ABNORMAL [None]
  - LACRIMATION INCREASED [None]
  - TRANSIENT ISCHAEMIC ATTACK [None]
